FAERS Safety Report 5236280-2 (Version None)
Quarter: 2007Q1

REPORT INFORMATION
  Report Type: 
  Country: None (occurrence: None)
  Receive Date: 20070212
  Receipt Date: 20070205
  Transmission Date: 20070707
  Serious: Yes (Hospitalization)
  Sender: FDA-Public Use
  Company Number: DE-BOEHRINGER INGELHEIM PHARMACEUTICALS, INC.-2006-DE-06861DE

PATIENT
  Sex: Male

DRUGS (2)
  1. MICARDIS HCT [Suspect]
     Dates: start: 20061002
  2. ENALAPRIL HCT [Suspect]
     Dates: start: 20060601, end: 20060930

REACTIONS (3)
  - NASAL DISCOMFORT [None]
  - PAROSMIA [None]
  - RHINALGIA [None]
